FAERS Safety Report 8780520 (Version 1)
Quarter: 2012Q4

REPORT INFORMATION
  Report Type: Spontaneous
  Country: AU (occurrence: None)
  Receive Date: 20120829
  Receipt Date: 20120829
  Transmission Date: 20130627
  Serious: Yes (Other)
  Sender: FDA-Public Use
  Company Number: COL_12225_2012

PATIENT
  Sex: Female

DRUGS (2)
  1. COLGATE TOTAL WHITENING G [Suspect]
     Route: 048
     Dates: start: 20120813, end: 20120813
  2. COLGATE TOTAL WHITENING G [Suspect]
     Route: 048
     Dates: start: 20120813, end: 20120813

REACTIONS (5)
  - Feeling hot [None]
  - Rash pruritic [None]
  - Local swelling [None]
  - Pharyngeal oedema [None]
  - Dysphagia [None]
